FAERS Safety Report 6337488-5 (Version None)
Quarter: 2009Q3

REPORT INFORMATION
  Report Type: 
  Country: None (occurrence: None)
  Receive Date: 20090901
  Receipt Date: 20090901
  Transmission Date: 20100115
  Serious: Yes (Other)
  Sender: FDA-Public Use
  Company Number: None

PATIENT
  Age: 48 Year
  Sex: Female
  Weight: 73.9363 kg

DRUGS (3)
  1. LEVAQUIN [Suspect]
     Indication: PYREXIA
     Dosage: 750 MG 1 A DAY PO
     Route: 048
     Dates: start: 20090527, end: 20090531
  2. LEVAQUIN [Suspect]
     Indication: PYREXIA
     Dosage: 750 MG 1 A DAY PO
     Route: 048
     Dates: start: 20090511, end: 20090618
  3. LEVAQUIN [Concomitant]

REACTIONS (5)
  - BLOOD PRESSURE INCREASED [None]
  - HEADACHE [None]
  - JOINT EFFUSION [None]
  - NIGHTMARE [None]
  - TENDON RUPTURE [None]
